FAERS Safety Report 10162985 (Version 1)
Quarter: 2014Q2

REPORT INFORMATION
  Report Type: Spontaneous
  Country: US (occurrence: US)
  Receive Date: 20140509
  Receipt Date: 20140509
  Transmission Date: 20141212
  Serious: No
  Sender: FDA-Public Use
  Company Number: US-PFIZER INC-2014124950

PATIENT
  Sex: Female

DRUGS (2)
  1. ETHOSUXIMIDE [Suspect]
     Indication: CONVULSION
     Dosage: UNK
  2. KEPPRA [Suspect]
     Indication: CONVULSION
     Dosage: UNK

REACTIONS (1)
  - Drug ineffective [Unknown]
